FAERS Safety Report 6310422-X (Version None)
Quarter: 2009Q3

REPORT INFORMATION
  Report Type: 
  Country: None (occurrence: None)
  Receive Date: 20090814
  Receipt Date: 20090805
  Transmission Date: 20100115
  Serious: Yes (Other)
  Sender: FDA-Public Use
  Company Number: US-PFIZER INC-2009253184

PATIENT
  Sex: Male
  Weight: 90.718 kg

DRUGS (1)
  1. LIPITOR [Suspect]
     Indication: BLOOD CHOLESTEROL INCREASED
     Dosage: 40 MG, 1X/DAY
     Route: 048
     Dates: start: 20070101, end: 20090701

REACTIONS (3)
  - DIZZINESS [None]
  - MUSCLE ATROPHY [None]
  - WEIGHT DECREASED [None]
